FAERS Safety Report 5945157-6 (Version None)
Quarter: 2008Q4

REPORT INFORMATION
  Report Type: 
  Country: None (occurrence: None)
  Receive Date: 20081107
  Receipt Date: 20081105
  Transmission Date: 20090506
  Serious: Yes (Other)
  Sender: FDA-Public Use
  Company Number: A0755318A

PATIENT
  Age: 36 Year
  Sex: Male
  Weight: 80 kg

DRUGS (1)
  1. CEFUROXIME [Suspect]
     Indication: PHARYNGITIS
     Dosage: 500MG TWICE PER DAY
     Route: 048
     Dates: start: 20081102, end: 20081102

REACTIONS (3)
  - NASOPHARYNGITIS [None]
  - RALES [None]
  - RESPIRATORY DISTRESS [None]
